FAERS Safety Report 17909275 (Version 2)
Quarter: 2020Q3

REPORT INFORMATION
  Report Type: Report from Study
  Country: None (occurrence: BR)
  Receive Date: 20200618
  Receipt Date: 20200917
  Transmission Date: 20201103
  Serious: Yes (Death, Hospitalization)
  Sender: FDA-Public Use
  Company Number: BR-ABBVIE-20K-020-3448015-00

PATIENT
  Sex: Male

DRUGS (1)
  1. ABBV?066 [Suspect]
     Active Substance: RISANKIZUMAB
     Indication: PSORIASIS
     Dosage: UNKNOWN
     Route: 058
     Dates: start: 20191210

REACTIONS (1)
  - COVID-19 [Fatal]
